FAERS Safety Report 25490599 (Version 1)
Quarter: 2025Q2

REPORT INFORMATION
  Report Type: Spontaneous
  Country: FR (occurrence: FR)
  Receive Date: 20250627
  Receipt Date: 20250627
  Transmission Date: 20250717
  Serious: Yes (Other)
  Sender: PFIZER
  Company Number: FR-LMS-2025000722

PATIENT
  Sex: Male

DRUGS (13)
  1. PANTOPRAZOLE [Interacting]
     Active Substance: PANTOPRAZOLE
     Route: 065
  2. ELIQUIS [Interacting]
     Active Substance: APIXABAN
     Route: 065
  3. ORGOVYX [Interacting]
     Active Substance: RELUGOLIX
     Route: 065
  4. VENLAFAXINE HYDROCHLORIDE [Interacting]
     Active Substance: VENLAFAXINE HYDROCHLORIDE
     Route: 065
  5. CALCIUM\CHOLECALCIFEROL [Interacting]
     Active Substance: CALCIUM\CHOLECALCIFEROL
     Route: 065
  6. TAMSULOSIN [Interacting]
     Active Substance: TAMSULOSIN
     Route: 065
  7. AMIODARONE [Interacting]
     Active Substance: AMIODARONE
     Route: 065
  8. EZETIMIBE [Interacting]
     Active Substance: EZETIMIBE
     Route: 065
  9. CHOLECALCIFEROL [Interacting]
     Active Substance: CHOLECALCIFEROL
     Route: 065
  10. PULMICORT TURBUHALER [Interacting]
     Active Substance: BUDESONIDE
     Route: 065
  11. BISOPROLOL [Interacting]
     Active Substance: BISOPROLOL
     Route: 065
  12. DAPAGLIFLOZIN [Interacting]
     Active Substance: DAPAGLIFLOZIN
     Route: 065
  13. ALPRAZOLAM [Interacting]
     Active Substance: ALPRAZOLAM
     Route: 065

REACTIONS (2)
  - Hyperkalaemia [Unknown]
  - Drug interaction [Unknown]

NARRATIVE: CASE EVENT DATE: 20250501
